FAERS Safety Report 7486483-1 (Version None)
Quarter: 2011Q2

REPORT INFORMATION
  Report Type: 
  Country: None (occurrence: None)
  Receive Date: 20110517
  Receipt Date: 20100512
  Transmission Date: 20111010
  Serious: No
  Sender: FDA-Public Use
  Company Number: US-NOVEN-ALL1-2010-02793

PATIENT

DRUGS (2)
  1. DAYTRANA [Suspect]
     Dosage: 10 MG, 1X/DAY:QD
     Route: 062
     Dates: start: 20100401, end: 20100505
  2. DAYTRANA [Suspect]
     Dosage: TWO 10 MG. PATCHES FOR A TOTAL OF 20 MG. DAILY
     Route: 062
     Dates: start: 20100506, end: 20100511

REACTIONS (2)
  - FEELING ABNORMAL [None]
  - PSYCHOMOTOR HYPERACTIVITY [None]
